FAERS Safety Report 5843481-9 (Version None)
Quarter: 2008Q3

REPORT INFORMATION
  Report Type: 
  Country: None (occurrence: None)
  Receive Date: 20080811
  Receipt Date: 20080730
  Transmission Date: 20090109
  Serious: Yes (Death)
  Sender: FDA-Public Use
  Company Number: 19907

PATIENT
  Age: 63 Year
  Sex: Female
  Weight: 64 kg

DRUGS (12)
  1. CYTARABINE [Suspect]
     Indication: ACUTE LEUKAEMIA
     Dosage: 1600 MG QID UNK
     Dates: start: 20080205, end: 20080209
  2. CLOFARABINE [Suspect]
     Indication: ACUTE LEUKAEMIA
     Dosage: 40 MG/M2 FREQ UNK UNK
     Dates: start: 20080206, end: 20080210
  3. ACYCLOVIR [Concomitant]
  4. ALLOPURINOL [Concomitant]
  5. CORSODYL [Concomitant]
  6. DOMPERIDONE [Concomitant]
  7. FLUCONAZOLE [Concomitant]
  8. HYDROXYUREA [Concomitant]
  9. LEVOPROME [Concomitant]
  10. LEVOTHYROXINE SODIUM [Concomitant]
  11. NYSTATIN [Concomitant]
  12. ONDANSETRON [Concomitant]

REACTIONS (1)
  - NEUTROPENIC SEPSIS [None]
